FAERS Safety Report 24801455 (Version 1)
Quarter: 2025Q1

REPORT INFORMATION
  Report Type: Spontaneous
  Country: US (occurrence: US)
  Receive Date: 20250102
  Receipt Date: 20250102
  Transmission Date: 20250409
  Serious: No
  Sender: DR REDDYS
  Company Number: US-DRL-USA-SPO/USA/24/0018816

PATIENT
  Age: 27 Year
  Sex: Female

DRUGS (3)
  1. ACCUTANE [Suspect]
     Active Substance: ISOTRETINOIN
     Indication: Product used for unknown indication
     Dosage: FINISHING MONTH 2 AT 40MG TWICE A DAY
     Route: 065
     Dates: start: 20240901
  2. ACCUTANE [Suspect]
     Active Substance: ISOTRETINOIN
     Dosage: FINISHING THE MONTH 3 AT 40MG THREE TIMES DAILY
     Route: 065
  3. FENOFIBRATE [Concomitant]
     Active Substance: FENOFIBRATE
     Indication: Product used for unknown indication
     Route: 065

REACTIONS (13)
  - Lip dry [Unknown]
  - Pruritus [Recovering/Resolving]
  - Dry eye [Unknown]
  - Arthralgia [Unknown]
  - Scar [Recovering/Resolving]
  - Erythema [Recovering/Resolving]
  - Skin exfoliation [Recovering/Resolving]
  - Blood triglycerides increased [Unknown]
  - Dermatitis [Recovering/Resolving]
  - Dry skin [Recovering/Resolving]
  - Illness [Unknown]
  - Myalgia [Unknown]
  - Rash [Recovered/Resolved]

NARRATIVE: CASE EVENT DATE: 20241112
